FAERS Safety Report 21096538 (Version 2)
Quarter: 2022Q4

REPORT INFORMATION
  Report Type: Spontaneous
  Country: US (occurrence: US)
  Receive Date: 20220718
  Receipt Date: 20221031
  Transmission Date: 20230113
  Serious: Yes (Hospitalization)
  Sender: FDA-Public Use
  Company Number: US-BRISTOL-MYERS SQUIBB COMPANY-2022-070083

PATIENT
  Age: 64 Year
  Sex: Male
  Weight: 76.79 kg

DRUGS (2)
  1. REVLIMID [Suspect]
     Active Substance: LENALIDOMIDE
     Indication: Plasma cell myeloma
     Route: 048
  2. REVLIMID [Suspect]
     Active Substance: LENALIDOMIDE
     Dosage: 2W, 1W OFF
     Route: 048

REACTIONS (4)
  - Nasopharyngitis [Unknown]
  - Renal disorder [Unknown]
  - Off label use [Unknown]
  - Cough [Unknown]
